FAERS Safety Report 5818035-0 (Version None)
Quarter: 2008Q3

REPORT INFORMATION
  Report Type: 
  Country: None (occurrence: None)
  Receive Date: 20080722
  Receipt Date: 20070810
  Transmission Date: 20090109
  Serious: No
  Sender: FDA-Public Use
  Company Number: US-BAYER-US-2007-029965

PATIENT
  Age: 47 Year
  Sex: Female
  Weight: 127 kg

DRUGS (7)
  1. MAGNEVIST [Suspect]
     Indication: NUCLEAR MAGNETIC RESONANCE IMAGING
     Dosage: UNIT DOSE: 20 ML
     Route: 042
     Dates: start: 20070810, end: 20070810
  2. EXCEDRIN (MIGRAINE) [Concomitant]
  3. VICODIN [Concomitant]
  4. IMITREX [Concomitant]
  5. ^GALAPAPIN^ [Concomitant]
  6. SYNTHROID [Concomitant]
  7. NEXIUM [Concomitant]

REACTIONS (3)
  - DIPLOPIA [None]
  - DIZZINESS [None]
  - PALLOR [None]
